FAERS Safety Report 20869311 (Version 2)
Quarter: 2022Q2

REPORT INFORMATION
  Report Type: Report from Study
  Country: CO (occurrence: CO)
  Receive Date: 20220524
  Receipt Date: 20220602
  Transmission Date: 20220721
  Serious: Yes (Other)
  Sender: FDA-Public Use
  Company Number: CO-BRISTOL-MYERS SQUIBB COMPANY-2022-038523

PATIENT
  Age: 38 Year
  Sex: Female
  Weight: 74 kg

DRUGS (10)
  1. PLACEBO [Suspect]
     Active Substance: UNSPECIFIED INGREDIENT
     Indication: Breast cancer
     Dosage: MOST RECENT DOSE RECEIVED ON 18-MAY-2022.?ACTION TAKEN: DRUG DELAYED
     Route: 042
     Dates: start: 20220329
  2. PACLITAXEL [Suspect]
     Active Substance: PACLITAXEL
     Indication: Breast cancer
     Dosage: MOST RECENT DOSE RECEIVED ON 31-MAY-2022.?ACTION TAKEN: DRUG DELAYED
     Route: 042
     Dates: start: 20220329
  3. ACETAMINOPHEN [Concomitant]
     Active Substance: ACETAMINOPHEN
     Indication: Prophylaxis
     Route: 048
     Dates: start: 20220329, end: 20220415
  4. ACETAMINOPHEN [Concomitant]
     Active Substance: ACETAMINOPHEN
     Route: 048
     Dates: start: 20220329
  5. ACETAMINOPHEN [Concomitant]
     Active Substance: ACETAMINOPHEN
     Route: 048
     Dates: start: 20220329, end: 20220329
  6. DIPHENHYDRAMINE [Concomitant]
     Active Substance: DIPHENHYDRAMINE
     Indication: Prophylaxis
     Route: 048
     Dates: start: 20220329, end: 20220329
  7. ONDANSETRON [Concomitant]
     Active Substance: ONDANSETRON
     Indication: Product used for unknown indication
     Route: 042
     Dates: start: 20220329, end: 20220329
  8. DEXAMETHASONE [Concomitant]
     Active Substance: DEXAMETHASONE
     Indication: Prophylaxis
     Route: 042
     Dates: start: 20220329, end: 20220329
  9. VACUNA CONTRA EL COVID-19, 19 VACUNA NRVV AD26 (JNJ 78436735) [Concomitant]
     Indication: Prophylaxis
     Route: 058
     Dates: start: 20210716
  10. PFIZER COVID-19 VACCINE, COVID-19 VACCINE [Concomitant]
     Indication: Prophylaxis
     Route: 058
     Dates: start: 20220310

REACTIONS (3)
  - Maternal exposure during pregnancy [Unknown]
  - Abortion spontaneous [Recovered/Resolved]
  - Pregnancy with contraceptive device [Unknown]

NARRATIVE: CASE EVENT DATE: 20220401
